FAERS Safety Report 6959537-3 (Version None)
Quarter: 2010Q3

REPORT INFORMATION
  Report Type: 
  Country: None (occurrence: None)
  Receive Date: 20100827
  Receipt Date: 20100811
  Transmission Date: 20110219
  Serious: Yes (Hospitalization)
  Sender: FDA-Public Use
  Company Number: 2010003025

PATIENT
  Age: 78 Year
  Sex: Female

DRUGS (3)
  1. ERLOTINIB HYDROCHLORIDE [Suspect]
     Indication: ADENOCARCINOMA PANCREAS
     Dosage: ORAL
     Route: 048
     Dates: start: 20100525, end: 20100725
  2. GEMCITABINE [Suspect]
     Indication: ADENOCARCINOMA PANCREAS
     Dosage: INTRAVENOUS
     Route: 042
     Dates: start: 20100525, end: 20100720
  3. PANITUMUMAB [Suspect]
     Indication: ADENOCARCINOMA PANCREAS
     Dosage: INTRAVENOUS
     Route: 042
     Dates: start: 20100525, end: 20100720

REACTIONS (11)
  - ABASIA [None]
  - BILIARY DILATATION [None]
  - CHOLELITHIASIS [None]
  - DYSPHAGIA [None]
  - HAEMOGLOBIN ABNORMAL [None]
  - HEPATIC FAILURE [None]
  - HYPOCALCAEMIA [None]
  - HYPONATRAEMIA [None]
  - LETHARGY [None]
  - PLATELET COUNT ABNORMAL [None]
  - PYREXIA [None]
